FAERS Safety Report 14988152 (Version 1)
Quarter: 2018Q2

REPORT INFORMATION
  Report Type: Spontaneous
  Country: US (occurrence: US)
  Receive Date: 20180608
  Receipt Date: 20180608
  Transmission Date: 20180711
  Serious: No
  Sender: FDA-Public Use
  Company Number: US-PFIZER INC-2018229762

PATIENT
  Age: 48 Year
  Sex: Female

DRUGS (2)
  1. XELJANZ [Suspect]
     Active Substance: TOFACITINIB CITRATE
     Dosage: 5 MG, 2X/DAY
     Route: 048
  2. RASUVO [Concomitant]
     Active Substance: METHOTREXATE SODIUM
     Dosage: WEEKLY (STRENGTH: 12.5/0.25 MG/ML)
     Route: 058

REACTIONS (1)
  - Arthralgia [Unknown]
